FAERS Safety Report 5155819-9 (Version None)
Quarter: 2006Q4

REPORT INFORMATION
  Report Type: 
  Country: None (occurrence: None)
  Receive Date: 20061121
  Receipt Date: 20061107
  Transmission Date: 20070319
  Serious: Yes (Hospitalization)
  Sender: FDA-Public Use
  Company Number: US-ALLERGAN-0607186US

PATIENT
  Age: 60 Year
  Sex: Female

DRUGS (5)
  1. BOTOX [Suspect]
     Indication: TORTICOLLIS
     Dosage: 200 IU, SINGLE
     Route: 030
     Dates: start: 20050301, end: 20050301
  2. BOTOX [Suspect]
     Dosage: 100 IU, SINGLE
     Route: 030
     Dates: start: 20060901, end: 20060901
  3. BOTOX [Suspect]
     Dosage: 100 IU, SINGLE
     Route: 030
     Dates: start: 20051201, end: 20051201
  4. BOTOX [Suspect]
     Dosage: 100 IU, SINGLE
     Route: 030
     Dates: start: 20060301, end: 20060301
  5. BOTOX [Suspect]
     Dosage: 100 IU, SINGLE
     Route: 030
     Dates: start: 20060601, end: 20060601

REACTIONS (4)
  - ASTHENIA [None]
  - DYSPNOEA [None]
  - FATIGUE [None]
  - OXYGEN SATURATION DECREASED [None]
